FAERS Safety Report 7801400-X (Version None)
Quarter: 2011Q4

REPORT INFORMATION
  Report Type: 
  Country: None (occurrence: None)
  Receive Date: 20111007
  Receipt Date: 20110926
  Transmission Date: 20120403
  Serious: Yes (Other)
  Sender: FDA-Public Use
  Company Number: US-BAYER-2011-009682

PATIENT
  Age: 22 Year
  Sex: Female
  Weight: 108.84 kg

DRUGS (7)
  1. DROSPIRENONE AND ETHINYL ESTRADIOL [Suspect]
     Indication: CONTRACEPTION
     Dosage: UNK
     Dates: start: 20040101, end: 20090801
  2. IBUPROFEN (ADVIL) [Concomitant]
     Dosage: 200 MG, Q4HR
     Route: 048
  3. YAZ [Suspect]
     Indication: CONTRACEPTION
     Dosage: UNK
     Dates: start: 20040101, end: 20090801
  4. LIBRAX [Concomitant]
     Dosage: UNK UNK, BID
     Route: 048
  5. NEXIUM [Concomitant]
     Dosage: 40 MG, QD
     Route: 048
  6. YASMIN [Suspect]
     Indication: CONTRACEPTION
     Dosage: UNK
     Dates: start: 20040101, end: 20090801
  7. VICODIN [Concomitant]
     Dosage: UNK UNK, PRN
     Route: 048

REACTIONS (8)
  - GALLBLADDER DISORDER [None]
  - PAIN [None]
  - ABDOMINAL DISCOMFORT [None]
  - RETCHING [None]
  - INJURY [None]
  - EMOTIONAL DISTRESS [None]
  - VOMITING [None]
  - CHOLECYSTITIS CHRONIC [None]
